FAERS Safety Report 9803157 (Version 1)
Quarter: 2014Q1

REPORT INFORMATION
  Report Type: Spontaneous
  Country: US (occurrence: US)
  Receive Date: 20140108
  Receipt Date: 20140108
  Transmission Date: 20141002
  Serious: No
  Sender: FDA-Public Use
  Company Number: US-PFIZER INC-2014003716

PATIENT
  Age: 40 Year
  Sex: Male
  Weight: 68.03 kg

DRUGS (10)
  1. LYRICA [Suspect]
     Indication: INTERVERTEBRAL DISC PROTRUSION
     Dosage: 75 MG, 2X/DAY
     Dates: start: 201312, end: 20140103
  2. LYRICA [Suspect]
     Indication: MYOFASCITIS
     Dosage: 150 MG, 2X/DAY
     Dates: start: 20140103
  3. LYRICA [Suspect]
     Indication: INTERVERTEBRAL DISC ANNULAR TEAR
  4. LYRICA [Suspect]
     Indication: INTERVERTEBRAL DISC DISORDER
  5. LYRICA [Suspect]
     Indication: SPINAL OSTEOARTHRITIS
  6. PERCOCET [Concomitant]
     Dosage: UNK
  7. IBUPROFEN [Concomitant]
     Dosage: 800 MG, UNK
  8. LISINOPRIL [Concomitant]
     Indication: HYPERTENSION
     Dosage: UNK
  9. AMBIEN [Concomitant]
     Indication: INSOMNIA
     Dosage: UNK
  10. LEXAPRO [Concomitant]
     Dosage: UNK

REACTIONS (2)
  - Off label use [Unknown]
  - Pain [Recovering/Resolving]
